FAERS Safety Report 9680868 (Version 2)
Quarter: 2013Q4

REPORT INFORMATION
  Report Type: Report from Study
  Country: TW (occurrence: TW)
  Receive Date: 20131111
  Receipt Date: 20131115
  Transmission Date: 20140711
  Serious: Yes (Death)
  Sender: FDA-Public Use
  Company Number: PHHY2013TW127363

PATIENT
  Age: 84 Year
  Sex: Male
  Weight: 52 kg

DRUGS (2)
  1. AMN107 [Suspect]
     Dosage: 600 MG, UNK
     Route: 048
     Dates: start: 20130621, end: 20131013
  2. THEOPHYLLINE [Concomitant]

REACTIONS (4)
  - Death [Fatal]
  - Loss of consciousness [Unknown]
  - Fall [Unknown]
  - Asthenia [Unknown]
